FAERS Safety Report 16350688 (Version 1)
Quarter: 2019Q2

REPORT INFORMATION
  Report Type: Spontaneous
  Country: NL (occurrence: NL)
  Receive Date: 20190524
  Receipt Date: 20190524
  Transmission Date: 20190711
  Serious: Yes (Other)
  Sender: FDA-Public Use
  Company Number: NL-TEVA-2019-NL-1052895

PATIENT
  Age: 81 Year
  Sex: Male

DRUGS (19)
  1. PARACETAMOL TEVA 1000MG [Concomitant]
     Dosage: 2DD1
  2. OXAZEPAM MYLAN 10MG [Concomitant]
     Dosage: 1DD1
  3. LEVETIRACETAM TEVA 1000MG [Concomitant]
     Dosage: 2DD1
  4. CALCI CHEW D3 500MG/800IE [Concomitant]
     Dosage: 1DD1
  5. FOLIUMZUUR TEVA 5MG [Concomitant]
     Dosage: 1X PER WEEK 2 TABLETS
  6. SULFASALAZINE TEVA 500MG [Concomitant]
     Dosage: 2DD2
  7. ROSUVASTATINE TEVA 5MG [Concomitant]
     Dosage: 1DD1
  8. LEVETIRACETAM TEVA 500MG [Concomitant]
     Dosage: 2DD1
  9. PANTOPRAZOL SANDOZ 40MG [Concomitant]
     Dosage: 1DD1
  10. METHOTREXAAT SANDOZ 2,5MG [Concomitant]
     Dosage: 1X PER WEEK 4 TABLETS
  11. DIAZEPAM APOT 10MG RECTIOOL [Concomitant]
     Dosage: 2DD1
  12. IPRAMOL 0,5/2,5MG/2,5ML [Concomitant]
     Dosage: 4DD1
  13. PREDNISOLONE. [Suspect]
     Active Substance: PREDNISOLONE
     Indication: RHEUMATIC DISORDER
     Dosage: 1X 3 PIECES DAILY
     Dates: start: 20190411
  14. METOPROLOL SUCCINAAT MYLAN 50MG [Concomitant]
     Dosage: 1DD1
     Route: 065
  15. MONO CEDOCARD 25MG [Concomitant]
     Dosage: 1DD1
  16. INHIBIN 100MG [Concomitant]
     Dosage: 1DD1
  17. ALENDRONINEZUUR MYLAN 70MG [Concomitant]
     Dosage: 1XPER WEEK 1
  18. CARBAMAZEPINE APOT 200MG [Concomitant]
     Dosage: 1DD1
  19. ACENOCOUMAROL TEVA [Concomitant]
     Dosage: ACCORDING TO PRESCRIPTION

REACTIONS (2)
  - Epilepsy [Recovered/Resolved]
  - Condition aggravated [Recovered/Resolved]

NARRATIVE: CASE EVENT DATE: 20190419
